FAERS Safety Report 15690200 (Version 1)
Quarter: 2018Q4

REPORT INFORMATION
  Report Type: Spontaneous
  Country: CN (occurrence: CN)
  Receive Date: 20181205
  Receipt Date: 20181205
  Transmission Date: 20190205
  Serious: Yes (Hospitalization)
  Sender: FDA-Public Use
  Company Number: CN-PFIZER INC-2018493269

PATIENT
  Age: 46 Year
  Sex: Female
  Weight: 54.6 kg

DRUGS (3)
  1. SODIUM CHLORIDE. [Suspect]
     Active Substance: SODIUM CHLORIDE
     Indication: VEHICLE SOLUTION USE
     Dosage: 100 ML, 1X/DAY
     Route: 041
     Dates: start: 20180919, end: 20180919
  2. CYCLOPHOSPHAMIDE. [Suspect]
     Active Substance: CYCLOPHOSPHAMIDE
     Indication: CHEMOTHERAPY
     Dosage: 0.9 G, 1X/DAY
     Route: 041
     Dates: start: 20180919, end: 20180919
  3. PHARMORUBICIN [Suspect]
     Active Substance: EPIRUBICIN
     Indication: CHEMOTHERAPY
     Dosage: 150 MG, 1X/DAY
     Route: 041
     Dates: start: 20180919, end: 20180919

REACTIONS (3)
  - Myalgia [Recovering/Resolving]
  - Tonsillitis [Recovering/Resolving]
  - Cytopenia [Recovered/Resolved]

NARRATIVE: CASE EVENT DATE: 20180926
